FAERS Safety Report 7580807-2 (Version None)
Quarter: 2011Q2

REPORT INFORMATION
  Report Type: 
  Country: None (occurrence: None)
  Receive Date: 20110629
  Receipt Date: 20110614
  Transmission Date: 20111010
  Serious: Yes (Other)
  Sender: FDA-Public Use
  Company Number: GB-WATSON-2011-08193

PATIENT
  Age: 29 Year
  Sex: Female

DRUGS (6)
  1. NEVIRAPINE [Suspect]
     Indication: PRODUCT USED FOR UNKNOWN INDICATION
     Dosage: UNK
  2. HYDROCORTISONE ACETATE [Suspect]
     Indication: RASH MACULAR
     Dosage: 50 MG, TID
  3. FAMCICLOVIR [Suspect]
     Indication: NECROTISING RETINITIS
     Dosage: UNK
     Route: 048
  4. ACYCLOVIR [Suspect]
     Indication: NECROTISING RETINITIS
     Dosage: UNK
  5. SULFAMETHOXAZOLE AND TRIMETHOPRIM [Suspect]
     Indication: ORAL CANDIDIASIS
     Dosage: UNK
  6. AMOXICILLIN [Suspect]
     Indication: LOWER RESPIRATORY TRACT INFECTION
     Dosage: UNK

REACTIONS (5)
  - ANGIOEDEMA [None]
  - DRUG HYPERSENSITIVITY [None]
  - RASH MACULAR [None]
  - RASH [None]
  - CD4 LYMPHOCYTES DECREASED [None]
